FAERS Safety Report 5016850-7 (Version None)
Quarter: 2006Q2

REPORT INFORMATION
  Report Type: 
  Country: None (occurrence: None)
  Receive Date: 20060526
  Receipt Date: 20060516
  Transmission Date: 20061013
  Serious: Yes (Death, Hospitalization, Other)
  Sender: FDA-Public Use
  Company Number: 2006-05-1303

PATIENT
  Age: 68 Year
  Sex: Male

DRUGS (6)
  1. PEGINTERFERON INJECTABLE POWDER (PEGINTERFERON ALFA-2B) [Suspect]
     Indication: HEPATITIS C
     Dosage: 120 MCG QWK SUBCUTANEOUS
     Route: 058
     Dates: start: 20021022, end: 20030426
  2. REBETOL [Suspect]
     Indication: HEPATITIS C
     Dosage: 1000 MG ORAL
     Route: 048
     Dates: start: 20021022, end: 20030503
  3. MIXTARD HUMAN 70/30 [Concomitant]
  4. TRANSTEC (BUPRENORPHINE) [Concomitant]
  5. ZESTRIL [Concomitant]
  6. GLUCOPHAGE [Concomitant]

REACTIONS (8)
  - BRONCHITIS [None]
  - CHOKING [None]
  - DIABETES MELLITUS INADEQUATE CONTROL [None]
  - GENERAL PHYSICAL HEALTH DETERIORATION [None]
  - HYPOGLYCAEMIA [None]
  - LIVER DISORDER [None]
  - LUNG DISORDER [None]
  - VOMITING [None]
